FAERS Safety Report 7162945-1 (Version None)
Quarter: 2010Q4

REPORT INFORMATION
  Report Type: 
  Country: None (occurrence: None)
  Receive Date: 20101215
  Receipt Date: 20100201
  Transmission Date: 20110411
  Serious: Yes (Hospitalization, Other)
  Sender: FDA-Public Use
  Company Number: GB-PFIZER INC-2010008361

PATIENT
  Age: 29 Year
  Sex: Female

DRUGS (1)
  1. LYRICA [Suspect]
     Indication: ANXIETY
     Dosage: 1350 MG, 1X/DAY
     Dates: start: 20091001

REACTIONS (10)
  - ABASIA [None]
  - AGITATION [None]
  - BRAIN INJURY [None]
  - DRUG PRESCRIBING ERROR [None]
  - DYSPHONIA [None]
  - INCONTINENCE [None]
  - INCORRECT DOSE ADMINISTERED [None]
  - MEMORY IMPAIRMENT [None]
  - SALIVARY GLAND DISORDER [None]
  - SPEECH DISORDER [None]
